FAERS Safety Report 4673781-X (Version None)
Quarter: 2005Q2

REPORT INFORMATION
  Report Type: 
  Country: None (occurrence: None)
  Receive Date: 20050525
  Receipt Date: 20050418
  Transmission Date: 20051028
  Serious: Yes (Other)
  Sender: FDA-Public Use
  Company Number: PT-ABBOTT-05P-130-0297765-00

PATIENT
  Sex: Male
  Weight: 75 kg

DRUGS (2)
  1. KLACID [Suspect]
     Indication: BRONCHIAL INFECTION
     Route: 048
     Dates: start: 20050118, end: 20050126
  2. SUCRALFATE [Concomitant]
     Indication: GASTRITIS
     Route: 048
     Dates: start: 20020101

REACTIONS (2)
  - ANISOCYTOSIS [None]
  - PLATELET DISORDER [None]
